FAERS Safety Report 5071735-5 (Version None)
Quarter: 2006Q3

REPORT INFORMATION
  Report Type: 
  Country: None (occurrence: None)
  Receive Date: 20060804
  Receipt Date: 20060728
  Transmission Date: 20061208
  Serious: Yes (Other)
  Sender: FDA-Public Use
  Company Number: US-GLAXOSMITHKLINE-A0614141A

PATIENT
  Age: 62 Year
  Sex: Female

DRUGS (2)
  1. CITRUCEL SUGAR-FREE SUSPENSION ORANGE [Suspect]
     Dates: start: 19990101
  2. CITRUCEL CAPLETS [Suspect]
     Dates: end: 20060101

REACTIONS (9)
  - ABDOMINAL DISCOMFORT [None]
  - ABDOMINAL PAIN [None]
  - EATING DISORDER [None]
  - GASTROENTERITIS RADIATION [None]
  - GASTROOESOPHAGEAL REFLUX DISEASE [None]
  - HEADACHE [None]
  - MALAISE [None]
  - VAGINAL INFECTION [None]
  - WEIGHT DECREASED [None]
